APPROVED DRUG PRODUCT: LANSOPRAZOLE
Active Ingredient: LANSOPRAZOLE
Strength: 30MG
Dosage Form/Route: CAPSULE, DELAYED REL PELLETS;ORAL
Application: A205868 | Product #002 | TE Code: AB
Applicant: INVENTIA HEALTHCARE LTD
Approved: Aug 30, 2017 | RLD: No | RS: No | Type: RX